FAERS Safety Report 4421426-6 (Version None)
Quarter: 2004Q3

REPORT INFORMATION
  Report Type: 
  Country: None (occurrence: None)
  Receive Date: 20040709
  Receipt Date: 20040422
  Transmission Date: 20050211
  Serious: No
  Sender: FDA-Public Use
  Company Number: 2004S1000083

PATIENT

DRUGS (1)
  1. CUBICIN [Suspect]
     Dates: start: 20040101, end: 20040101

REACTIONS (1)
  - TRANSAMINASES INCREASED [None]
